FAERS Safety Report 6316071-1 (Version None)
Quarter: 2009Q3

REPORT INFORMATION
  Report Type: 
  Country: None (occurrence: None)
  Receive Date: 20090820
  Receipt Date: 20090807
  Transmission Date: 20100115
  Serious: Yes (Hospitalization)
  Sender: FDA-Public Use
  Company Number: PHHY2009CH34055

PATIENT
  Age: 72 Year
  Sex: Female

DRUGS (15)
  1. LOPRESSOR [Suspect]
     Indication: ACUTE MYOCARDIAL INFARCTION
     Dosage: 50 MG, QID
     Route: 048
     Dates: start: 20090403, end: 20090408
  2. LOPRESSOR [Suspect]
     Dosage: 25 MG, QID
     Route: 048
     Dates: start: 20090409, end: 20090409
  3. LOPRESSOR [Suspect]
     Dosage: 50 MG, QID
     Route: 048
     Dates: start: 20090410
  4. BETALOC ZOK [Suspect]
     Indication: ACUTE MYOCARDIAL INFARCTION
     Dosage: 50 MG, QD
     Route: 048
     Dates: start: 20090408, end: 20090409
  5. SORTIS [Concomitant]
     Route: 048
  6. LIQUAEMIN INJ [Concomitant]
     Route: 042
  7. ASPIRIN [Concomitant]
     Dosage: 100 MG, QD
     Route: 048
  8. AMLODIPINE [Concomitant]
     Dosage: 10 MG, QD
     Route: 048
  9. TORASEMIDE [Concomitant]
     Dosage: 10 MG, QD
     Route: 048
  10. ENALAPRIL MALEATE [Concomitant]
     Dosage: 10 MG, BID
     Route: 048
  11. DAFALGAN [Concomitant]
     Dosage: 1 G, TID
     Route: 048
  12. GLUCOPHAGE [Concomitant]
     Dosage: 500 MG, BID
     Route: 048
     Dates: start: 20090408
  13. DIGOXIN [Concomitant]
     Dosage: 0.125 MG, QD
     Route: 048
     Dates: start: 20090409
  14. ALBUMIN (HUMAN) [Concomitant]
     Dosage: 100 ML, BID
     Route: 042
     Dates: start: 20090407
  15. PENICILLIN [Concomitant]
     Dosage: 3 IU, QD
     Route: 042
     Dates: start: 20090408

REACTIONS (6)
  - ATRIAL FIBRILLATION [None]
  - CARDIAC FAILURE [None]
  - CARDIAC FLUTTER [None]
  - HYPERTENSION [None]
  - LEFT VENTRICULAR FAILURE [None]
  - PLEURAL EFFUSION [None]
